FAERS Safety Report 6640140-X (Version None)
Quarter: 2010Q1

REPORT INFORMATION
  Report Type: 
  Country: None (occurrence: None)
  Receive Date: 20100318
  Receipt Date: 20100309
  Transmission Date: 20100710
  Serious: Yes (Other)
  Sender: FDA-Public Use
  Company Number: US-AMGEN-KDL395544

PATIENT
  Sex: Male
  Weight: 127.1 kg

DRUGS (4)
  1. ENBREL [Suspect]
     Indication: RHEUMATOID ARTHRITIS
     Route: 058
     Dates: start: 20091105, end: 20091201
  2. LEFLUNOMIDE [Concomitant]
     Dates: start: 20070201
  3. METHOTREXATE [Concomitant]
     Dates: start: 20090101
  4. UNSPECIFIED NON-STEROIDAL ANTI-INFLAMMATORY AGENT [Concomitant]

REACTIONS (3)
  - FLUID OVERLOAD [None]
  - OEDEMA [None]
  - RENAL FAILURE [None]
